FAERS Safety Report 22334422 (Version 1)
Quarter: 2023Q2

REPORT INFORMATION
  Report Type: Spontaneous
  Country: GB (occurrence: GB)
  Receive Date: 20230517
  Receipt Date: 20230517
  Transmission Date: 20230721
  Serious: Yes (Other)
  Sender: FDA-Public Use
  Company Number: GB-MHRA-MED-202304272147122500-ZPFBS

PATIENT
  Age: 52 Year
  Sex: Female

DRUGS (1)
  1. FEXOFENADINE [Suspect]
     Active Substance: FEXOFENADINE HYDROCHLORIDE
     Indication: Mast cell activation syndrome
     Dates: start: 20230416

REACTIONS (6)
  - Asthma [Not Recovered/Not Resolved]
  - Pharyngeal swelling [Not Recovered/Not Resolved]
  - Wheezing [Unknown]
  - Cough [Unknown]
  - Urticaria [Unknown]
  - Product use in unapproved indication [Unknown]
